FAERS Safety Report 4880570-X (Version None)
Quarter: 2006Q1

REPORT INFORMATION
  Report Type: 
  Country: None (occurrence: None)
  Receive Date: 20060113
  Receipt Date: 20051220
  Transmission Date: 20060701
  Serious: Yes (Hospitalization)
  Sender: FDA-Public Use
  Company Number: US-MERCK-0512USA03348

PATIENT
  Age: 74 Year
  Sex: Male
  Weight: 89 kg

DRUGS (7)
  1. VIOXX [Suspect]
     Indication: ARTHRITIS
     Route: 048
     Dates: start: 20001001
  2. VIOXX [Suspect]
     Route: 048
     Dates: end: 20010101
  3. ASPIRIN [Concomitant]
     Route: 048
  4. PRILOSEC [Concomitant]
     Route: 065
  5. UNIVASC [Concomitant]
     Route: 065
  6. ACCOLATE [Concomitant]
     Route: 065
  7. REGLAN [Concomitant]
     Route: 065

REACTIONS (6)
  - ARRHYTHMIA [None]
  - ARTHROPATHY [None]
  - ATRIOVENTRICULAR BLOCK COMPLETE [None]
  - CARDIAC FAILURE CONGESTIVE [None]
  - CORONARY ARTERY DISEASE [None]
  - MYOCARDIAL INFARCTION [None]
